FAERS Safety Report 26097418 (Version 1)
Quarter: 2025Q4

REPORT INFORMATION
  Report Type: Spontaneous
  Country: US (occurrence: US)
  Receive Date: 20251127
  Receipt Date: 20251127
  Transmission Date: 20260118
  Serious: Yes (Hospitalization)
  Sender: ELI LILLY AND COMPANY
  Company Number: US-ELI_LILLY_AND_COMPANY-US202511027222

PATIENT
  Age: 72 Year
  Sex: Male

DRUGS (2)
  1. ZEPBOUND [Suspect]
     Active Substance: TIRZEPATIDE
     Indication: Weight control
     Dosage: 2.5 MG, UNKNOWN
     Route: 065
  2. ZEPBOUND [Suspect]
     Active Substance: TIRZEPATIDE
     Dosage: 5 MG, UNKNOWN
     Route: 065
     Dates: start: 20250926

REACTIONS (11)
  - Blood sodium decreased [Not Recovered/Not Resolved]
  - Blood chloride decreased [Unknown]
  - Blood creatinine increased [Unknown]
  - Renal impairment [Recovered/Resolved]
  - Inappropriate antidiuretic hormone secretion [Unknown]
  - Disturbance in attention [Unknown]
  - Confusional state [Unknown]
  - Irritability [Unknown]
  - Insomnia [Unknown]
  - Emotional disorder [Unknown]
  - Tremor [Unknown]
